FAERS Safety Report 23840895 (Version 1)
Quarter: 2024Q2

REPORT INFORMATION
  Report Type: Spontaneous
  Country: CN (occurrence: CN)
  Receive Date: 20240510
  Receipt Date: 20240510
  Transmission Date: 20240716
  Serious: Yes (Other)
  Sender: FDA-Public Use
  Company Number: None

PATIENT
  Age: 35 Year
  Sex: Male
  Weight: 55 kg

DRUGS (3)
  1. SODIUM CHLORIDE [Suspect]
     Active Substance: SODIUM CHLORIDE
     Indication: Crohn^s disease
     Dosage: 100 ML, THREE TIMES IN ONE DAY, (DOSAGE FORM: INJECTION)
     Route: 041
     Dates: start: 20240329, end: 20240412
  2. SODIUM CHLORIDE [Suspect]
     Active Substance: SODIUM CHLORIDE
     Indication: Medication dilution
  3. PIPERACILLIN AND TAZOBACTAM [Suspect]
     Active Substance: PIPERACILLIN SODIUM\TAZOBACTAM SODIUM
     Indication: Crohn^s disease
     Dosage: (MANUFACTURER: JIANGSU HAOHONG PHARMACEUTICAL CO., LTD.) 4.5 GRAMS, THREE TIMES IN ONE DAY (DOSAGE F
     Route: 041
     Dates: start: 20240329, end: 20240412

REACTIONS (1)
  - Platelet count decreased [Recovered/Resolved]

NARRATIVE: CASE EVENT DATE: 20240407
